FAERS Safety Report 25479179 (Version 1)
Quarter: 2025Q2

REPORT INFORMATION
  Report Type: Spontaneous
  Country: ES (occurrence: ES)
  Receive Date: 20250625
  Receipt Date: 20250625
  Transmission Date: 20250716
  Serious: Yes (Other)
  Sender: MYLAN
  Company Number: None

PATIENT
  Age: 39 Year
  Sex: Female
  Weight: 52 kg

DRUGS (4)
  1. TRANEXAMIC ACID [Suspect]
     Active Substance: TRANEXAMIC ACID
     Indication: Chloasma
     Dosage: 250 MILLIGRAM, BID (HALF A TABLET EVERY 12 HOURS), 30 TABLETS
     Dates: start: 202504
  2. LEVOTHYROXINE SODIUM [Concomitant]
     Active Substance: LEVOTHYROXINE SODIUM
     Indication: Autoimmune hypothyroidism
     Dosage: 50 MICROGRAM, QD (1 TABLET DAILY), 100 TABLETS.
     Dates: start: 2008
  3. Medebiotin [Concomitant]
     Indication: Androgenetic alopecia
     Dosage: 2 DOSAGE FORM, QD ( 2 TABLETS DAILY), 40 TABLETS
  4. VENLAFAXINE HYDROCHLORIDE [Concomitant]
     Active Substance: VENLAFAXINE HYDROCHLORIDE
     Indication: Depression
     Dosage: 1 DOSAGE FORM, QD (1 TABLET DAILY), 30 TABLETS

REACTIONS (2)
  - Thrombosis [Not Recovered/Not Resolved]
  - Pain of skin [Not Recovered/Not Resolved]

NARRATIVE: CASE EVENT DATE: 20250529
